FAERS Safety Report 9322086 (Version 1)
Quarter: 2013Q2

REPORT INFORMATION
  Report Type: Spontaneous
  Country: IT (occurrence: None)
  Receive Date: 20130529
  Receipt Date: 20130529
  Transmission Date: 20140414
  Serious: Yes (Other)
  Sender: FDA-Public Use
  Company Number: GER/ITL/13/0029625

PATIENT
  Age: 64 Year
  Sex: Male
  Weight: 102 kg

DRUGS (4)
  1. ATORVASTATIN [Suspect]
     Indication: PRODUCT USED FOR UNKNOWN INDICATION
     Route: 048
     Dates: start: 20100101, end: 20130422
  2. ENALAPRIL [Suspect]
     Indication: PRODUCT USED FOR UNKNOWN INDICATION
     Route: 048
     Dates: start: 20020101, end: 20130415
  3. CARDIOASPIRIN (ACETYLSALICYLIC ACID) [Concomitant]
  4. REPAGLINIDE (REPAGLINIDE) [Concomitant]

REACTIONS (3)
  - Drug interaction [None]
  - Angioedema [None]
  - Pruritus generalised [None]
